FAERS Safety Report 4772202-6 (Version None)
Quarter: 2005Q3

REPORT INFORMATION
  Report Type: 
  Country: None (occurrence: None)
  Receive Date: 20050919
  Receipt Date: 20041206
  Transmission Date: 20060218
  Serious: No
  Sender: FDA-Public Use
  Company Number: US-BRISTOL-MYERS SQUIBB COMPANY-12788246

PATIENT
  Age: 30 Year
  Sex: Female
  Weight: 141 kg

DRUGS (1)
  1. DEFINITY [Suspect]
     Route: 040
     Dates: start: 20041203, end: 20041203

REACTIONS (2)
  - HEADACHE [None]
  - NAUSEA [None]
